FAERS Safety Report 9834289 (Version 2)
Quarter: 2014Q1

REPORT INFORMATION
  Report Type: Spontaneous
  Country: US (occurrence: US)
  Receive Date: 20140122
  Receipt Date: 20140309
  Transmission Date: 20141002
  Serious: Yes (Death)
  Sender: FDA-Public Use
  Company Number: US-ROCHE-1337022

PATIENT
  Sex: Male

DRUGS (1)
  1. XELODA [Suspect]
     Indication: NEOPLASM MALIGNANT
     Dosage: 3 TABLETS IN AM, 3 TABLETS IN PM
     Route: 048
     Dates: start: 20131011, end: 20140104

REACTIONS (2)
  - Rectal adenocarcinoma [Fatal]
  - Metastases to liver [Fatal]
